FAERS Safety Report 13856281 (Version 2)
Quarter: 2017Q3

REPORT INFORMATION
  Report Type: Report from Study
  Country: US (occurrence: US)
  Receive Date: 20170810
  Receipt Date: 20170822
  Transmission Date: 20171127
  Serious: Yes (Hospitalization)
  Sender: FDA-Public Use
  Company Number: US-ACTELION-A-US2017-155358

PATIENT
  Age: 62 Year
  Sex: Female
  Weight: 56.24 kg

DRUGS (26)
  1. UPTRAVI [Suspect]
     Active Substance: SELEXIPAG
     Dosage: 1200 MCG, UNK
     Route: 048
     Dates: start: 20170526
  2. LETAIRIS [Suspect]
     Active Substance: AMBRISENTAN
     Indication: PULMONARY HYPERTENSION
     Dosage: 10 MG, QD
     Route: 048
     Dates: start: 20100816
  3. REVATIO [Concomitant]
     Active Substance: SILDENAFIL CITRATE
  4. TRAMADOL. [Concomitant]
     Active Substance: TRAMADOL
  5. ROPINIROLE. [Concomitant]
     Active Substance: ROPINIROLE
  6. UPTRAVI [Suspect]
     Active Substance: SELEXIPAG
     Indication: PULMONARY HYPERTENSION
     Dosage: 1600 MCG, BID
     Route: 048
  7. HYDROXYCHLOROQUINE [Concomitant]
     Active Substance: HYDROXYCHLOROQUINE
  8. VITAMIN B12 [Concomitant]
     Active Substance: CYANOCOBALAMIN
  9. TYVASO [Suspect]
     Active Substance: TREPROSTINIL
     Indication: PULMONARY HYPERTENSION
     Dosage: 18-72 MCG (3-12 BREATHS), QID
     Route: 055
     Dates: start: 20160325
  10. DIGOXIN. [Concomitant]
     Active Substance: DIGOXIN
  11. TYVASO [Suspect]
     Active Substance: TREPROSTINIL
     Dosage: 18-54MCG (3-9 BREATHS), QID
     Route: 055
     Dates: start: 20160607
  12. LETAIRIS [Suspect]
     Active Substance: AMBRISENTAN
     Indication: SCLERODERMA
  13. LASIX [Concomitant]
     Active Substance: FUROSEMIDE
  14. ONDANSETRON [Concomitant]
     Active Substance: ONDANSETRON
  15. TYVASO [Suspect]
     Active Substance: TREPROSTINIL
     Dosage: 36 MCG (6 BREATHS), QID
     Route: 055
  16. ASPIR 81 [Concomitant]
  17. ATORVASTATIN [Concomitant]
     Active Substance: ATORVASTATIN
  18. UPTRAVI [Suspect]
     Active Substance: SELEXIPAG
     Dosage: 200 MCG, UNK
     Route: 048
     Dates: start: 20170526
  19. TYVASO [Suspect]
     Active Substance: TREPROSTINIL
     Dosage: 60 MCG, QID
     Route: 055
  20. COUMADIN [Concomitant]
     Active Substance: WARFARIN SODIUM
  21. PREVACID [Concomitant]
     Active Substance: LANSOPRAZOLE
  22. LIDOCAINE. [Concomitant]
     Active Substance: LIDOCAINE
  23. POTASSIUM CHLORIDE. [Concomitant]
     Active Substance: POTASSIUM CHLORIDE
  24. PHENERGAN [Concomitant]
     Active Substance: PROMETHAZINE HYDROCHLORIDE
  25. CELLCEPT [Concomitant]
     Active Substance: MYCOPHENOLATE MOFETIL\MYCOPHENOLATE MOFETIL HYDROCHLORIDE
  26. IMODIUM [Concomitant]
     Active Substance: LOPERAMIDE HYDROCHLORIDE

REACTIONS (9)
  - Condition aggravated [Unknown]
  - Chest pain [Unknown]
  - Vomiting [Recovered/Resolved]
  - Weight decreased [Unknown]
  - Right ventricular enlargement [Unknown]
  - Headache [Not Recovered/Not Resolved]
  - Nausea [Not Recovered/Not Resolved]
  - Pulmonary hypertension [Unknown]
  - Heart valve incompetence [Unknown]

NARRATIVE: CASE EVENT DATE: 201705
